FAERS Safety Report 11664707 (Version 1)
Quarter: 2015Q4

REPORT INFORMATION
  Report Type: Spontaneous
  Country: US (occurrence: None)
  Receive Date: 20151026
  Receipt Date: 20151026
  Transmission Date: 20160304
  Serious: Yes (Hospitalization)
  Sender: FDA-Public Use
  Company Number: None

PATIENT
  Age: 72 Year
  Sex: Male
  Weight: 99.9 kg

DRUGS (12)
  1. APAP [Concomitant]
     Active Substance: ACETAMINOPHEN
  2. SUCRALFATE. [Concomitant]
     Active Substance: SUCRALFATE
  3. FUROSEMIDE. [Concomitant]
     Active Substance: FUROSEMIDE
  4. ATORVASTATIN [Concomitant]
     Active Substance: ATORVASTATIN
  5. POTASSIUM CHLORIDE. [Concomitant]
     Active Substance: POTASSIUM CHLORIDE
  6. ELIQUIS [Suspect]
     Active Substance: APIXABAN
     Dosage: 1  PILL  BID  ORAL
     Route: 048
  7. BRIMONIDINE-TIMOLOL [Concomitant]
  8. PANTOPRAZOLE [Concomitant]
     Active Substance: PANTOPRAZOLE SODIUM
  9. BIMATOPROST 0.01% [Concomitant]
  10. ENALAPRIL [Concomitant]
     Active Substance: ENALAPRIL
  11. METOPROLOL SUCCINATE. [Concomitant]
     Active Substance: METOPROLOL SUCCINATE
  12. MULTIPLE VITAMINS [Concomitant]
     Active Substance: VITAMINS

REACTIONS (1)
  - Post procedural haemorrhage [None]

NARRATIVE: CASE EVENT DATE: 20151020
